FAERS Safety Report 17693270 (Version 1)
Quarter: 2020Q2

REPORT INFORMATION
  Report Type: Spontaneous
  Country: US (occurrence: US)
  Receive Date: 20200422
  Receipt Date: 20200422
  Transmission Date: 20200714
  Serious: No
  Sender: FDA-Public Use
  Company Number: None

PATIENT
  Age: 79 Year
  Sex: Female
  Weight: 119.25 kg

DRUGS (6)
  1. TAGRISSO [Suspect]
     Active Substance: OSIMERTINIB
     Indication: LUNG NEOPLASM MALIGNANT
     Route: 048
     Dates: start: 20200417, end: 20200422
  2. VITAMIN C [Concomitant]
     Active Substance: ASCORBIC ACID
  3. ELIQUIS [Concomitant]
     Active Substance: APIXABAN
  4. LITHIUM. [Concomitant]
     Active Substance: LITHIUM
  5. LISBONA OMEGA 3 [Concomitant]
  6. COREG [Concomitant]
     Active Substance: CARVEDILOL

REACTIONS (1)
  - Muscle spasms [None]

NARRATIVE: CASE EVENT DATE: 20200421
